FAERS Safety Report 6095225-6 (Version None)
Quarter: 2009Q1

REPORT INFORMATION
  Report Type: 
  Country: None (occurrence: None)
  Receive Date: 20090227
  Receipt Date: 20080225
  Transmission Date: 20090719
  Serious: No
  Sender: FDA-Public Use
  Company Number: A0709967A

PATIENT
  Age: 53 Year
  Sex: Female
  Weight: 109.1 kg

DRUGS (6)
  1. LAMICTAL [Suspect]
     Indication: BIPOLAR DISORDER
     Dosage: 150MG AT NIGHT
     Route: 048
     Dates: start: 20050101, end: 20080101
  2. EFFEXOR [Concomitant]
     Indication: DEPRESSION
  3. CYMBALTA [Concomitant]
     Indication: DEPRESSION
  4. ZYPREXA [Concomitant]
  5. ABILIFY [Concomitant]
  6. TOPAMAX [Concomitant]
     Indication: CLUSTER HEADACHE

REACTIONS (2)
  - DISTURBANCE IN ATTENTION [None]
  - DRUG INEFFECTIVE [None]
